FAERS Safety Report 15660078 (Version 1)
Quarter: 2018Q4

REPORT INFORMATION
  Report Type: Spontaneous
  Country: CA (occurrence: CA)
  Receive Date: 20181127
  Receipt Date: 20181127
  Transmission Date: 20190205
  Serious: Yes (Hospitalization)
  Sender: FDA-Public Use
  Company Number: CA-CELLTRION INC.-2018CA022975

PATIENT

DRUGS (6)
  1. INFLECTRA [Suspect]
     Active Substance: INFLIXIMAB-DYYB
     Indication: COLITIS ULCERATIVE
     Dosage: 400 MG, (Q 0-2-4 WEEKS, THEN EVERY 4 WEEKS
     Route: 042
     Dates: start: 20181003
  2. IMURAN [Concomitant]
     Active Substance: AZATHIOPRINE
     Dosage: UNK
     Dates: start: 201809
  3. VIBERZI [Concomitant]
     Active Substance: ELUXADOLINE
     Dosage: UNK
     Dates: start: 201809
  4. INFLECTRA [Suspect]
     Active Substance: INFLIXIMAB-DYYB
     Dosage: 400 MG, (Q 0-2-4 WEEKS, THEN EVERY 4 WEEKS
     Route: 042
     Dates: start: 20181017
  5. CODEINE [Concomitant]
     Active Substance: CODEINE
     Dosage: UNK
  6. INFLECTRA [Suspect]
     Active Substance: INFLIXIMAB-DYYB
     Dosage: 400 MG, (Q 0-2-4 WEEKS, THEN EVERY 4 WEEKS
     Route: 042
     Dates: start: 20181114

REACTIONS (3)
  - Condition aggravated [Unknown]
  - Dehydration [Unknown]
  - Product use issue [Unknown]
